FAERS Safety Report 13738479 (Version 1)
Quarter: 2017Q3

REPORT INFORMATION
  Report Type: Spontaneous
  Country: US (occurrence: US)
  Receive Date: 20170710
  Receipt Date: 20170710
  Transmission Date: 20171127
  Serious: Yes (Other)
  Sender: FDA-Public Use
  Company Number: US-SAOL THERAPEUTICS-2016SAO01294

PATIENT
  Age: 44 Year
  Sex: Male

DRUGS (5)
  1. HYDROMORPHONE [Suspect]
     Active Substance: HYDROMORPHONE
     Dosage: 10.246 MG, \DAY
     Route: 037
  2. BACLOFEN. [Suspect]
     Active Substance: BACLOFEN
     Indication: POST LAMINECTOMY SYNDROME
  3. CLONIDINE. [Suspect]
     Active Substance: CLONIDINE
     Dosage: 307.39 ?G, \DAY
     Route: 037
  4. BACLOFEN. [Suspect]
     Active Substance: BACLOFEN
     Indication: PAIN
     Dosage: 49.336 ?G, \DAY
     Route: 037
  5. BUPIVACAINE. [Suspect]
     Active Substance: BUPIVACAINE
     Dosage: 4.099 MG, \DAY
     Route: 037

REACTIONS (5)
  - Off label use [Unknown]
  - Withdrawal syndrome [Unknown]
  - Device failure [Unknown]
  - Fatigue [Unknown]
  - Nausea [Unknown]

NARRATIVE: CASE EVENT DATE: 201612
